FAERS Safety Report 8405840-X (Version None)
Quarter: 2012Q2

REPORT INFORMATION
  Report Type: 
  Country: None (occurrence: None)
  Receive Date: 20120604
  Receipt Date: 20120530
  Transmission Date: 20120825
  Serious: No
  Sender: FDA-Public Use
  Company Number: US-PFIZER INC-2012131170

PATIENT
  Sex: Male
  Weight: 78 kg

DRUGS (2)
  1. NEURONTIN [Suspect]
     Indication: PAIN IN EXTREMITY
     Dosage: 100 MG, DAILY
     Dates: start: 20120528
  2. PERCOCET [Suspect]
     Indication: PAIN IN EXTREMITY
     Dosage: UNK

REACTIONS (1)
  - DRUG INEFFECTIVE [None]
